FAERS Safety Report 19483773 (Version 1)
Quarter: 2021Q3

REPORT INFORMATION
  Report Type: Other
  Country: US (occurrence: US)
  Receive Date: 20210701
  Receipt Date: 20210701
  Transmission Date: 20211014
  Serious: No
  Sender: FDA-Public Use
  Company Number: US-ROCHE-2798574

PATIENT
  Age: 63 Year
  Sex: Male

DRUGS (14)
  1. DIAZEPAM. [Suspect]
     Active Substance: DIAZEPAM
     Indication: MUSCLE SPASMS
  2. GABAPENTIN. [Concomitant]
     Active Substance: GABAPENTIN
  3. PREGABALIN. [Concomitant]
     Active Substance: PREGABALIN
  4. DILTIAZEM. [Concomitant]
     Active Substance: DILTIAZEM
  5. RIBOFLAVIN [Concomitant]
     Active Substance: RIBOFLAVIN
  6. DIAZEPAM. [Suspect]
     Active Substance: DIAZEPAM
     Indication: RHABDOMYOLYSIS
     Route: 065
  7. QUININE [Concomitant]
     Active Substance: QUININE
  8. LAMOTRIGINE. [Concomitant]
     Active Substance: LAMOTRIGINE
  9. OMEPRAZOLE. [Concomitant]
     Active Substance: OMEPRAZOLE
  10. CLONAZEPAM. [Suspect]
     Active Substance: CLONAZEPAM
     Indication: RHABDOMYOLYSIS
  11. CLONAZEPAM. [Suspect]
     Active Substance: CLONAZEPAM
     Indication: MUSCLE SPASMS
     Route: 065
  12. SOTALOL. [Concomitant]
     Active Substance: SOTALOL
  13. DABIGATRAN [Concomitant]
     Active Substance: DABIGATRAN
  14. RILUZOLE. [Concomitant]
     Active Substance: RILUZOLE

REACTIONS (2)
  - No adverse event [Unknown]
  - Treatment failure [Unknown]
